FAERS Safety Report 9289945 (Version 1)
Quarter: 2013Q2

REPORT INFORMATION
  Report Type: Spontaneous
  Country: FR (occurrence: FR)
  Receive Date: 20130515
  Receipt Date: 20130515
  Transmission Date: 20140414
  Serious: Yes (Hospitalization, Other)
  Sender: FDA-Public Use
  Company Number: FR-JNJFOC-20130503804

PATIENT
  Age: 62 Year
  Sex: Female

DRUGS (7)
  1. ITRACONAZOLE [Suspect]
     Indication: BRONCHOPULMONARY ASPERGILLOSIS ALLERGIC
     Route: 065
  2. AMIODARONE [Suspect]
     Indication: BRONCHOPULMONARY ASPERGILLOSIS ALLERGIC
     Route: 065
     Dates: end: 2009
  3. BUDESONIDE [Suspect]
     Indication: CHRONIC RESPIRATORY FAILURE
     Route: 055
  4. BUDESONIDE [Suspect]
     Indication: ASTHMA
     Route: 055
  5. PREDNISOLONE [Suspect]
     Indication: CHRONIC RESPIRATORY FAILURE
     Route: 048
  6. PREDNISOLONE [Suspect]
     Indication: ASTHMA
     Route: 048
  7. INSULIN [Suspect]
     Indication: DIABETES MELLITUS
     Route: 065
     Dates: start: 2007

REACTIONS (7)
  - Hypoalbuminaemia [Unknown]
  - Cushing^s syndrome [Unknown]
  - Diabetes mellitus [Recovering/Resolving]
  - Hepatosplenomegaly [Unknown]
  - Hyperthyroidism [Unknown]
  - Cholestasis [Unknown]
  - Liver disorder [Unknown]
